FAERS Safety Report 21303479 (Version 3)
Quarter: 2023Q2

REPORT INFORMATION
  Report Type: Spontaneous
  Country: US (occurrence: US)
  Receive Date: 20220907
  Receipt Date: 20230417
  Transmission Date: 20230722
  Serious: No
  Sender: FDA-Public Use
  Company Number: US-BRISTOL-MYERS SQUIBB COMPANY-2022-101121

PATIENT
  Age: 73 Year
  Sex: Male

DRUGS (1)
  1. INREBIC [Suspect]
     Active Substance: FEDRATINIB HYDROCHLORIDE
     Indication: Myelofibrosis
     Route: 048
     Dates: start: 20210901

REACTIONS (5)
  - Sinusitis [Unknown]
  - Red blood cell count abnormal [Unknown]
  - Influenza [Unknown]
  - Micturition urgency [Unknown]
  - Pollakiuria [Unknown]
